FAERS Safety Report 7295893-7 (Version None)
Quarter: 2011Q1

REPORT INFORMATION
  Report Type: 
  Country: None (occurrence: None)
  Receive Date: 20110216
  Receipt Date: 20110204
  Transmission Date: 20110831
  Serious: Yes (Hospitalization, Other)
  Sender: FDA-Public Use
  Company Number: US-SANOFI-AVENTIS-2011SA008221

PATIENT
  Age: 73 Year
  Sex: Male

DRUGS (11)
  1. ASPIRIN [Concomitant]
  2. SYNTHROID [Concomitant]
  3. ATENOLOL [Concomitant]
  4. PREVACID [Concomitant]
  5. METFORMIN HCL [Concomitant]
     Indication: TYPE 2 DIABETES MELLITUS
  6. PLAVIX [Suspect]
     Route: 048
     Dates: start: 20070101
  7. PLAVIX [Suspect]
     Route: 048
     Dates: start: 20011101, end: 20070912
  8. NIACIN [Concomitant]
  9. LISINOPRIL [Concomitant]
  10. CRESTOR [Concomitant]
  11. LANTUS [Concomitant]

REACTIONS (4)
  - THYROID NEOPLASM [None]
  - BLINDNESS TRANSIENT [None]
  - THYROID CANCER [None]
  - MYOCARDIAL INFARCTION [None]
